FAERS Safety Report 6681148-8 (Version None)
Quarter: 2010Q2

REPORT INFORMATION
  Report Type: 
  Country: None (occurrence: None)
  Receive Date: 20100414
  Receipt Date: 20100406
  Transmission Date: 20101027
  Serious: Yes (Death, Hospitalization, Other)
  Sender: FDA-Public Use
  Company Number: BR-ROCHE-696515

PATIENT
  Sex: Male

DRUGS (12)
  1. SAQUINAVIR [Suspect]
     Indication: HIV INFECTION
     Route: 065
     Dates: start: 19960101, end: 19990101
  2. TELZIR [Suspect]
     Indication: HIV INFECTION
     Route: 065
     Dates: start: 20080901
  3. ZIDOVUDINE [Suspect]
     Indication: HIV INFECTION
     Route: 065
     Dates: start: 19960101, end: 19990101
  4. ZIDOVUDINE [Suspect]
     Route: 065
     Dates: start: 20020101, end: 20080301
  5. LAMIVUDINE [Suspect]
     Indication: HIV INFECTION
     Route: 065
     Dates: start: 19960101, end: 19990101
  6. LAMIVUDINE [Suspect]
     Dosage: FORM: TABLETS
     Route: 065
     Dates: start: 19990101
  7. LAMIVUDINE [Suspect]
     Route: 065
     Dates: start: 20080301
  8. STAVUDINE [Suspect]
     Indication: HIV INFECTION
     Route: 065
     Dates: start: 19990101, end: 20020101
  9. EFAVIRENZ [Suspect]
     Indication: HIV INFECTION
     Route: 065
     Dates: start: 19990101, end: 20020101
  10. LOPINAVIR [Suspect]
     Indication: HIV INFECTION
     Route: 065
     Dates: start: 20080301, end: 20080901
  11. RITONAVIR [Suspect]
     Indication: HIV INFECTION
     Route: 065
     Dates: start: 20080301
  12. TENOFOVIR [Suspect]
     Indication: HIV INFECTION
     Route: 065
     Dates: start: 20080301

REACTIONS (5)
  - ACUTE MYOCARDIAL INFARCTION [None]
  - BLOOD TRIGLYCERIDES INCREASED [None]
  - CARDIOPULMONARY FAILURE [None]
  - DIARRHOEA [None]
  - VIROLOGIC FAILURE [None]
